FAERS Safety Report 7918837-0 (Version None)
Quarter: 2011Q4

REPORT INFORMATION
  Report Type: 
  Country: None (occurrence: None)
  Receive Date: 20111116
  Receipt Date: 20111107
  Transmission Date: 20120403
  Serious: Yes (Other)
  Sender: FDA-Public Use
  Company Number: PHHY2011CA099113

PATIENT
  Age: 19 Year
  Sex: Male

DRUGS (8)
  1. CARBOPLATIN [Suspect]
     Indication: CHEMOTHERAPY
     Dosage: 17 MG/KG/DAY
  2. CYCLOPHOSPHAMIDE [Suspect]
     Indication: CHEMOTHERAPY
     Dosage: 0.05 MG/KG/DAY
  3. ETOPOSIDE [Suspect]
     Indication: CHEMOTHERAPY
     Dosage: 2.5 MG/KG/DAY
  4. RADIOTHERAPY [Suspect]
     Dosage: 45 GY IN 25 DAILY FRACTIONS
  5. VINCRISTINE [Suspect]
     Indication: CHEMOTHERAPY
     Dosage: 0.065 MG/KG, UNK
  6. CISPLATIN [Suspect]
     Dosage: 3.5 MG/KG, UNK
  7. METHOTREXATE [Suspect]
     Indication: CHEMOTHERAPY
     Dosage: 8 MG/M2, UNK
  8. THIOTEPA [Suspect]
     Indication: CHEMOTHERAPY
     Dosage: 10 MG/KG/DAY

REACTIONS (15)
  - BLINDNESS [None]
  - EYELID PTOSIS [None]
  - DEAFNESS [None]
  - LEUKOENCEPHALOPATHY [None]
  - COORDINATION ABNORMAL [None]
  - CEREBRAL VENTRICLE DILATATION [None]
  - CENTRAL NERVOUS SYSTEM LESION [None]
  - SEPSIS [None]
  - STRABISMUS [None]
  - HYPOTONIA [None]
  - APHASIA [None]
  - HEMIPLEGIA [None]
  - SPEECH DISORDER [None]
  - PAPILLOEDEMA [None]
  - IMMUNOSUPPRESSION [None]
